FAERS Safety Report 7941284-2 (Version None)
Quarter: 2011Q4

REPORT INFORMATION
  Report Type: 
  Country: None (occurrence: None)
  Receive Date: 20111128
  Receipt Date: 20111118
  Transmission Date: 20120403
  Serious: Yes (Death, Hospitalization, Other)
  Sender: FDA-Public Use
  Company Number: JP-BAYER-2011-063119

PATIENT
  Age: 52 Year
  Sex: Male
  Weight: 59 kg

DRUGS (5)
  1. NEXAVAR [Suspect]
     Indication: HEPATIC NEOPLASM MALIGNANT
     Dosage: DAILY DOSE 800 MG
     Route: 048
     Dates: start: 20110715, end: 20110911
  2. LANSOPRAZOLE [Concomitant]
     Indication: VARICES OESOPHAGEAL
     Dosage: DAILY DOSE 30 MG
     Route: 048
     Dates: end: 20110911
  3. LIVACT [Concomitant]
     Indication: HYPOALBUMINAEMIA
     Dosage: DAILY DOSE 3 DF
     Route: 048
     Dates: end: 20110911
  4. LASIX [Concomitant]
     Indication: ASCITES
     Dosage: DAILY DOSE 80 MG
     Route: 065
     Dates: end: 20110911
  5. URSO 250 [Concomitant]
     Indication: LIVER DISORDER
     Dosage: DAILY DOSE 600 MG
     Route: 048
     Dates: end: 20110911

REACTIONS (5)
  - RENAL FAILURE ACUTE [None]
  - HEPATIC NEOPLASM MALIGNANT [None]
  - HEPATIC ENCEPHALOPATHY [None]
  - MULTI-ORGAN FAILURE [None]
  - HEPATIC CIRRHOSIS [None]
